FAERS Safety Report 18170887 (Version 1)
Quarter: 2020Q3

REPORT INFORMATION
  Report Type: Spontaneous
  Country: US (occurrence: US)
  Receive Date: 20200819
  Receipt Date: 20200819
  Transmission Date: 20201103
  Serious: Yes (Other)
  Sender: FDA-Public Use
  Company Number: US-ARBOR PHARMACEUTICALS, LLC-US-2020ARB000648

PATIENT
  Sex: Female

DRUGS (1)
  1. EDARBI [Suspect]
     Active Substance: AZILSARTAN KAMEDOXOMIL
     Indication: BLOOD PRESSURE MANAGEMENT
     Dosage: UNK

REACTIONS (6)
  - Wrong technique in product usage process [Unknown]
  - Blood pressure increased [Unknown]
  - Product physical issue [Unknown]
  - Incorrect dose administered [Unknown]
  - Product solubility abnormal [Unknown]
  - Heart rate increased [Unknown]
